FAERS Safety Report 23509802 (Version 1)
Quarter: 2024Q1

REPORT INFORMATION
  Report Type: Spontaneous
  Country: US (occurrence: US)
  Receive Date: 20240210
  Receipt Date: 20240210
  Transmission Date: 20240410
  Serious: No
  Sender: FDA-Public Use
  Company Number: US-UNITED THERAPEUTICS-UNT-2023-016669

PATIENT
  Sex: Male

DRUGS (6)
  1. TYVASO [Suspect]
     Active Substance: TREPROSTINIL
     Indication: Idiopathic interstitial pneumonia
     Dosage: 54 ?G, QID
     Dates: start: 2023, end: 2023
  2. TYVASO [Suspect]
     Active Substance: TREPROSTINIL
     Indication: Interstitial lung disease
     Dosage: 48 ?G, QID
     Dates: start: 2023
  3. TYVASO [Suspect]
     Active Substance: TREPROSTINIL
     Dosage: 36 ?G, QID
     Dates: start: 2023
  4. TYVASO [Suspect]
     Active Substance: TREPROSTINIL
     Dosage: UNK
     Dates: start: 202303
  5. OFEV [Concomitant]
     Active Substance: NINTEDANIB
     Indication: Interstitial lung disease
     Dosage: 150 MG, BID
     Route: 048
     Dates: start: 20201203
  6. OFEV [Concomitant]
     Active Substance: NINTEDANIB
     Indication: Idiopathic pulmonary fibrosis

REACTIONS (19)
  - Oxygen saturation decreased [Not Recovered/Not Resolved]
  - Dyspnoea [Not Recovered/Not Resolved]
  - Asthenia [Not Recovered/Not Resolved]
  - Exercise tolerance decreased [Unknown]
  - Dyspnoea exertional [Unknown]
  - Mental disorder [Unknown]
  - Confusional state [Not Recovered/Not Resolved]
  - Decreased appetite [Not Recovered/Not Resolved]
  - Hypersomnia [Not Recovered/Not Resolved]
  - Urinary tract infection [Not Recovered/Not Resolved]
  - Prostatic disorder [Unknown]
  - Fatigue [Unknown]
  - Disorientation [Not Recovered/Not Resolved]
  - Therapy non-responder [Unknown]
  - Weight decreased [Unknown]
  - Condition aggravated [Unknown]
  - Interstitial lung disease [Unknown]
  - Idiopathic interstitial pneumonia [Unknown]
  - Off label use [Unknown]

NARRATIVE: CASE EVENT DATE: 20230101
